FAERS Safety Report 4496870-1 (Version None)
Quarter: 2004Q4

REPORT INFORMATION
  Report Type: 
  Country: None (occurrence: None)
  Receive Date: 20041109
  Receipt Date: 20041108
  Transmission Date: 20050328
  Serious: Yes (Hospitalization)
  Sender: FDA-Public Use
  Company Number: DE-GLAXOSMITHKLINE-D0045135A

PATIENT
  Age: 47 Year
  Sex: Female

DRUGS (7)
  1. SEROXAT [Suspect]
     Indication: SCHIZOAFFECTIVE DISORDER
     Dosage: 40MG PER DAY
     Route: 048
     Dates: start: 20040303, end: 20040413
  2. LEPONEX [Suspect]
     Dosage: 100MG PER DAY
     Route: 048
     Dates: start: 20040120, end: 20040324
  3. ATEHEXAL [Concomitant]
     Dosage: 50MG PER DAY
     Route: 048
     Dates: start: 20031222
  4. GASTROZEPIN [Concomitant]
     Dosage: 50MG PER DAY
     Route: 048
     Dates: start: 20040202, end: 20040407
  5. SOLIAN [Concomitant]
     Dosage: 150MG UNKNOWN
     Route: 065
     Dates: start: 20040101
  6. BIFITERAL [Concomitant]
     Dosage: 3SP UNKNOWN
     Route: 065
     Dates: start: 20040101
  7. ZOPICLON [Concomitant]
     Dosage: 3.75MG PER DAY
     Route: 065
     Dates: start: 20040101

REACTIONS (2)
  - DRUG INTERACTION [None]
  - HEPATIC ENZYME INCREASED [None]
